FAERS Safety Report 9607230 (Version 1)
Quarter: 2013Q4

REPORT INFORMATION
  Report Type: Spontaneous
  Country: ES (occurrence: ES)
  Receive Date: 20131009
  Receipt Date: 20131009
  Transmission Date: 20140711
  Serious: Yes (Hospitalization)
  Sender: FDA-Public Use
  Company Number: ES-009507513-1310ESP003352

PATIENT
  Age: 64 Year
  Sex: Male

DRUGS (2)
  1. SYCREST [Suspect]
     Indication: BIPOLAR I DISORDER
     Dosage: 5 MG, QD
     Route: 060
     Dates: start: 201211
  2. LITHIUM [Concomitant]
     Indication: BIPOLAR I DISORDER

REACTIONS (1)
  - Pulmonary embolism [Recovered/Resolved]
